FAERS Safety Report 15832081 (Version 1)
Quarter: 2019Q1

REPORT INFORMATION
  Report Type: Spontaneous
  Country: US (occurrence: US)
  Receive Date: 20190116
  Receipt Date: 20190116
  Transmission Date: 20190417
  Serious: Yes (Hospitalization, Other)
  Sender: FDA-Public Use
  Company Number: US-SA-2019SA009188

PATIENT
  Age: 68 Year
  Sex: Female

DRUGS (10)
  1. LEXAPRO [Concomitant]
     Active Substance: ESCITALOPRAM OXALATE
  2. LORAZEPAM. [Concomitant]
     Active Substance: LORAZEPAM
  3. ATENOLOL. [Concomitant]
     Active Substance: ATENOLOL
  4. MAGNESIUM OXIDE. [Concomitant]
     Active Substance: MAGNESIUM OXIDE
  5. AMLODIPINE [Concomitant]
     Active Substance: AMLODIPINE BESYLATE
  6. FOLIC ACID. [Concomitant]
     Active Substance: FOLIC ACID
  7. AUBAGIO [Suspect]
     Active Substance: TERIFLUNOMIDE
     Dosage: 14 MG, QD
     Route: 048
  8. PANTOPRAZOLE [Concomitant]
     Active Substance: PANTOPRAZOLE
  9. KEPPRA [Concomitant]
     Active Substance: LEVETIRACETAM
  10. VITAMIN D3 [Concomitant]
     Active Substance: CHOLECALCIFEROL

REACTIONS (7)
  - Nystagmus [Not Recovered/Not Resolved]
  - Breast operation [Not Recovered/Not Resolved]
  - Optic nerve disorder [Not Recovered/Not Resolved]
  - Diplopia [Not Recovered/Not Resolved]
  - Hospitalisation [Not Recovered/Not Resolved]
  - Multiple sclerosis relapse [Not Recovered/Not Resolved]
  - Urinary incontinence [Not Recovered/Not Resolved]

NARRATIVE: CASE EVENT DATE: 201810
